FAERS Safety Report 7153271-5 (Version None)
Quarter: 2010Q4

REPORT INFORMATION
  Report Type: 
  Country: None (occurrence: None)
  Receive Date: 20101213
  Receipt Date: 20101118
  Transmission Date: 20110411
  Serious: Yes (Life-Threatening, Hospitalization, Other)
  Sender: FDA-Public Use
  Company Number: FR-AMGEN-FRASP2010006474

PATIENT

DRUGS (1)
  1. ENBREL [Suspect]
     Indication: ANKYLOSING SPONDYLITIS

REACTIONS (10)
  - ABASIA [None]
  - ASTHENIA [None]
  - BLOOD ALKALINE PHOSPHATASE INCREASED [None]
  - C-REACTIVE PROTEIN INCREASED [None]
  - CACHEXIA [None]
  - GRUNTING [None]
  - INFLAMMATION [None]
  - SKIN DISORDER [None]
  - SPEECH DISORDER [None]
  - WEIGHT DECREASED [None]
